FAERS Safety Report 5454880-1 (Version None)
Quarter: 2007Q3

REPORT INFORMATION
  Report Type: 
  Country: None (occurrence: None)
  Receive Date: 20070917
  Receipt Date: 20061017
  Transmission Date: 20080115
  Serious: Yes (Other)
  Sender: FDA-Public Use
  Company Number: US-ASTRAZENECA-2006UW20167

PATIENT
  Age: 51 Year
  Sex: Female
  Weight: 92.5 kg

DRUGS (8)
  1. SEROQUEL [Suspect]
     Route: 048
     Dates: start: 19970101, end: 20000101
  2. WELLBUTRIN [Concomitant]
  3. CELEXA [Concomitant]
  4. KLONOPIN [Concomitant]
  5. HYZAAR [Concomitant]
  6. PROTONIX [Concomitant]
  7. PERMAX [Concomitant]
  8. CARDIZEM [Concomitant]

REACTIONS (1)
  - CARDIAC FAILURE CONGESTIVE [None]
